FAERS Safety Report 5892647-0 (Version None)
Quarter: 2008Q3

REPORT INFORMATION
  Report Type: 
  Country: None (occurrence: None)
  Receive Date: 20080923
  Receipt Date: 20080904
  Transmission Date: 20090109
  Serious: Yes (Other)
  Sender: FDA-Public Use
  Company Number: PHHY2008JP20862

PATIENT

DRUGS (2)
  1. LOCHOL [Suspect]
     Dosage: UNK
     Route: 048
     Dates: start: 20080101
  2. ANTIDEPRESSANTS [Concomitant]
     Dosage: UNK

REACTIONS (2)
  - INCORRECT DOSE ADMINISTERED [None]
  - OVERDOSE [None]
